FAERS Safety Report 9792493 (Version 1)
Quarter: 2014Q1

REPORT INFORMATION
  Report Type: Not Available
  Country: GB (occurrence: GB)
  Receive Date: 20140102
  Receipt Date: 20140102
  Transmission Date: 20141002
  Serious: Yes (Other)
  Sender: FDA-Public Use
  Company Number: GB-PURDUE-USA-2013-0109880

PATIENT
  Age: 64 Year
  Sex: Male

DRUGS (5)
  1. TRAMADOL (SIMILAR TO NDA 21-745) [Suspect]
     Indication: POSTOPERATIVE ANALGESIA
     Dosage: 100 MG, TID
     Route: 048
     Dates: start: 20131115
  2. CELECOXIB [Concomitant]
     Indication: ANALGESIC THERAPY
     Dosage: 200 MG, BID
     Route: 048
     Dates: start: 20131113
  3. DABIGATRAN [Concomitant]
     Indication: THROMBOSIS PROPHYLAXIS
     Dosage: 1 TABLET, DAILY
     Route: 048
     Dates: start: 20131113
  4. OMEPRAZOLE [Concomitant]
     Indication: PRODUCT USED FOR UNKNOWN INDICATION
     Dosage: 20 MG, UNK
     Route: 048
     Dates: start: 20131113
  5. PARACETAMOL [Concomitant]
     Indication: ANALGESIC THERAPY
     Dosage: 1 G, QID
     Route: 048
     Dates: start: 20131113

REACTIONS (2)
  - Prostatomegaly [Unknown]
  - Urinary retention [Recovered/Resolved]
